FAERS Safety Report 17144168 (Version 1)
Quarter: 2019Q4

REPORT INFORMATION
  Report Type: Spontaneous
  Country: IT (occurrence: IT)
  Receive Date: 20191212
  Receipt Date: 20191212
  Transmission Date: 20200122
  Serious: Yes (Disabling)
  Sender: FDA-Public Use
  Company Number: IT-TAKEDA-2019TUS070362

PATIENT
  Age: 86 Year
  Sex: Female

DRUGS (1)
  1. ADENURIC [Suspect]
     Active Substance: FEBUXOSTAT
     Indication: HYPERURICAEMIA
     Dosage: 80 MILLIGRAM, QD
     Route: 002
     Dates: start: 20191023, end: 20191112

REACTIONS (6)
  - Decreased appetite [Not Recovered/Not Resolved]
  - Genital rash [Not Recovered/Not Resolved]
  - Proteinuria [Not Recovered/Not Resolved]
  - Somnolence [Not Recovered/Not Resolved]
  - Stupor [Not Recovered/Not Resolved]
  - Pyrexia [Not Recovered/Not Resolved]
